FAERS Safety Report 23355276 (Version 1)
Quarter: 2024Q1

REPORT INFORMATION
  Report Type: Spontaneous
  Country: DE (occurrence: DE)
  Receive Date: 20240102
  Receipt Date: 20240102
  Transmission Date: 20240410
  Serious: Yes (Hospitalization, Other)
  Sender: FDA-Public Use
  Company Number: DE-BoehringerIngelheim-2023-BI-280550

PATIENT

DRUGS (2)
  1. OFEV [Suspect]
     Active Substance: NINTEDANIB
     Indication: Idiopathic pulmonary fibrosis
     Dates: start: 201802
  2. OFEV [Suspect]
     Active Substance: NINTEDANIB
     Dates: end: 202309

REACTIONS (8)
  - Weight decreased [Unknown]
  - Idiopathic pulmonary fibrosis [Unknown]
  - Feeding disorder [Unknown]
  - Quality of life decreased [Unknown]
  - Hip arthroplasty [Unknown]
  - Nausea [Not Recovered/Not Resolved]
  - Diarrhoea [Not Recovered/Not Resolved]
  - Knee arthroplasty [Unknown]

NARRATIVE: CASE EVENT DATE: 20221001
